FAERS Safety Report 23068419 (Version 1)
Quarter: 2023Q4

REPORT INFORMATION
  Report Type: Report from Study
  Country: US (occurrence: US)
  Receive Date: 20231016
  Receipt Date: 20231016
  Transmission Date: 20240110
  Serious: Yes (Other)
  Sender: FDA-Public Use
  Company Number: US-UCBSA-2023048986

PATIENT
  Sex: Male
  Weight: 72.6 kg

DRUGS (6)
  1. LEVETIRACETAM [Suspect]
     Active Substance: LEVETIRACETAM
     Indication: Seizure
     Dosage: 250 MILLIGRAM, ONCE DAILY (QD)
     Route: 048
     Dates: start: 2023
  2. KEPPRA XR [Suspect]
     Active Substance: LEVETIRACETAM
     Indication: Seizure
     Dosage: TAKE 2 TABLETS (1,000 RNG TOTAL) BY MOUTH 1 (ONE) TIME EACH DAY
     Route: 048
     Dates: start: 2023
  3. ELEPSIA XR [Suspect]
     Active Substance: LEVETIRACETAM
     Indication: Product used for unknown indication
     Dosage: ELEPSIA XR 1000 MG TABLET SUSTAINED-RELEASE 24 HOUR. TAKE 1 TABLET, IN THE AM ONLY
     Route: 048
  4. VIMPAT [Concomitant]
     Active Substance: LACOSAMIDE
     Indication: Seizure
     Dosage: TAKE 1 AND HALF TABLET IN THE TEAMING AND 2 TABLETS AT BEDTIME.,
     Dates: start: 2023
  5. ZONEGRAN [Concomitant]
     Active Substance: ZONISAMIDE
     Indication: Product used for unknown indication
     Dosage: 2 TABLETS IN THE RNOMING AND 3 TABLETS AT BEDTIME{
     Route: 048
  6. VENTOLIN HFA [Concomitant]
     Active Substance: ALBUTEROL SULFATE
     Indication: Wheezing
     Dosage: INHALE 2 PUFFS BY MOUTH EVERY 6 HOURS IF NEEDED
     Dates: start: 20230519

REACTIONS (9)
  - Generalised tonic-clonic seizure [Unknown]
  - Seizure [Unknown]
  - Depressed mood [Unknown]
  - Amnesia [Unknown]
  - Headache [Unknown]
  - Lethargy [Unknown]
  - Insurance issue [Unknown]
  - Therapy interrupted [Unknown]
  - Inappropriate schedule of product administration [Unknown]

NARRATIVE: CASE EVENT DATE: 20230101
